FAERS Safety Report 6702463-5 (Version None)
Quarter: 2010Q2

REPORT INFORMATION
  Report Type: 
  Country: None (occurrence: None)
  Receive Date: 20100429
  Receipt Date: 20100419
  Transmission Date: 20101027
  Serious: Yes (Other)
  Sender: FDA-Public Use
  Company Number: B0648263A

PATIENT
  Sex: Female

DRUGS (7)
  1. ZOPHREN [Suspect]
     Indication: PREMEDICATION
     Dosage: 8MG CYCLIC
     Route: 042
     Dates: start: 20100218
  2. RANITIDINE HCL [Suspect]
     Indication: PREMEDICATION
     Dosage: 50MG CYCLIC
     Route: 042
     Dates: start: 20100218
  3. PACLITAXEL [Suspect]
     Indication: LUNG ADENOCARCINOMA
     Route: 042
     Dates: start: 20100218, end: 20100325
  4. METHYLPREDNISOLONE [Suspect]
     Indication: PREMEDICATION
     Dosage: 120MG CYCLIC
     Route: 042
     Dates: start: 20100218
  5. POLARAMINE [Suspect]
     Indication: PREMEDICATION
     Dosage: 5MG CYCLIC
     Route: 042
     Dates: start: 20100218
  6. AVLOCARDYL [Concomitant]
     Dosage: 40MG PER DAY
     Route: 048
  7. CARBOPLATIN [Concomitant]
     Indication: LUNG ADENOCARCINOMA
     Route: 065
     Dates: start: 20100218, end: 20100311

REACTIONS (5)
  - BRONCHOSPASM [None]
  - DYSPNOEA [None]
  - HYPERSENSITIVITY [None]
  - HYPERTENSION [None]
  - INFUSION RELATED REACTION [None]
